FAERS Safety Report 9747636 (Version 2)
Quarter: 2013Q4

REPORT INFORMATION
  Report Type: Spontaneous
  Country: US (occurrence: None)
  Receive Date: 20131205
  Receipt Date: 20131223
  Transmission Date: 20140711
  Serious: Yes (Other)
  Sender: FDA-Public Use
  Company Number: SYM-2013-13666

PATIENT
  Age: 55 Year
  Sex: Male

DRUGS (10)
  1. 5 FU [Suspect]
     Indication: COLORECTAL CANCER METASTATIC
     Dosage: EVERY CYCLE
     Route: 040
     Dates: start: 20131029, end: 20131029
  2. AFLIBERCEPT [Suspect]
     Indication: COLORECTAL CANCER METASTATIC
     Dosage: EVERY CYCLE
     Dates: start: 20131029, end: 20131029
  3. IRINOTECAN (IRINOTECAN) (IRINOTECAN) [Suspect]
     Dosage: EVERY CYCLE
     Route: 040
     Dates: start: 20131029, end: 20131029
  4. LEUCOVORIN (FOLINIC ACID) (FOLINIC ACID) [Suspect]
     Indication: COLORECTAL CANCER METASTATIC
     Dosage: EVERY CYCLE
     Route: 040
     Dates: start: 20131029, end: 20131029
  5. VIT K ANTAGONISTS (VITAMIN K ANTAGONISTS) [Concomitant]
  6. CORTICOSTEROIDS [Concomitant]
  7. ANALGESICS [Concomitant]
  8. GLUTAMINE (LEVOGLUTAMIDE) [Concomitant]
  9. SLOW IRON (IRON) [Concomitant]
  10. VITAMIN C [Concomitant]

REACTIONS (9)
  - Weight decreased [None]
  - Febrile neutropenia [None]
  - Platelet count decreased [None]
  - Blood alkaline phosphatase increased [None]
  - Blood bilirubin increased [None]
  - Diarrhoea [None]
  - Hypersensitivity [None]
  - Bronchitis [None]
  - Proteinuria [None]
